FAERS Safety Report 13087347 (Version 2)
Quarter: 2017Q1

REPORT INFORMATION
  Report Type: Spontaneous
  Country: US (occurrence: US)
  Receive Date: 20170105
  Receipt Date: 20170303
  Transmission Date: 20170428
  Serious: No
  Sender: FDA-Public Use
  Company Number: US-ASTRAZENECA-2017SE00891

PATIENT
  Age: 19104 Day
  Sex: Female
  Weight: 49.9 kg

DRUGS (4)
  1. BYETTA [Suspect]
     Active Substance: EXENATIDE
     Indication: DIABETES MELLITUS
     Route: 058
  2. BYDUREON [Suspect]
     Active Substance: EXENATIDE
     Indication: DIABETES MELLITUS
     Route: 058
  3. TOPROL XL [Suspect]
     Active Substance: METOPROLOL SUCCINATE
     Indication: PALPITATIONS
     Route: 048
  4. INSULIN [Concomitant]
     Active Substance: INSULIN NOS

REACTIONS (4)
  - Injection site mass [Recovering/Resolving]
  - Weight decreased [Unknown]
  - Injection site nodule [Not Recovered/Not Resolved]
  - Palpitations [Unknown]

NARRATIVE: CASE EVENT DATE: 20110715
